FAERS Safety Report 15517234 (Version 3)
Quarter: 2018Q4

REPORT INFORMATION
  Report Type: Spontaneous
  Country: RU (occurrence: RU)
  Receive Date: 20181017
  Receipt Date: 20181121
  Transmission Date: 20190205
  Serious: Yes (Other)
  Sender: FDA-Public Use
  Company Number: RU-ELI_LILLY_AND_COMPANY-RU201810006855

PATIENT
  Age: 44 Year
  Sex: Male

DRUGS (4)
  1. PACLITAXEL. [Concomitant]
     Active Substance: PACLITAXEL
     Indication: NASAL CAVITY CANCER
     Dosage: 150 MG, UNKNOWN
     Route: 065
     Dates: start: 20180125
  2. ERBITUX [Suspect]
     Active Substance: CETUXIMAB
     Dosage: 460 MG, WEEKLY (1/W)
     Route: 042
     Dates: start: 20180201
  3. ERBITUX [Suspect]
     Active Substance: CETUXIMAB
     Indication: NASAL CAVITY CANCER
     Dosage: 740 MG, UNKNOWN
     Route: 042
     Dates: start: 20180118
  4. DEXAMETHASONE. [Concomitant]
     Active Substance: DEXAMETHASONE
     Indication: PREMEDICATION
     Dosage: UNK
     Route: 030
     Dates: start: 201805

REACTIONS (4)
  - Leukocytosis [Unknown]
  - Off label use [Unknown]
  - Malignant neoplasm progression [Recovered/Resolved]
  - Neutrophil count increased [Unknown]

NARRATIVE: CASE EVENT DATE: 20180523
